FAERS Safety Report 7112316-9 (Version None)
Quarter: 2010Q4

REPORT INFORMATION
  Report Type: 
  Country: None (occurrence: None)
  Receive Date: 20101119
  Receipt Date: 20100714
  Transmission Date: 20110411
  Serious: No
  Sender: FDA-Public Use
  Company Number: A0869862A

PATIENT
  Age: 73 Year
  Sex: Male

DRUGS (5)
  1. AVODART [Suspect]
     Dosage: .5MG PER DAY
     Route: 048
  2. PRILOSEC [Concomitant]
  3. NORVASC [Concomitant]
     Indication: HYPERTENSION
  4. DIOVAN [Concomitant]
  5. HYDROCHLOROTHIAZIDE [Concomitant]

REACTIONS (1)
  - ADVERSE EVENT [None]
